FAERS Safety Report 12207413 (Version 1)
Quarter: 2016Q1

REPORT INFORMATION
  Report Type: Spontaneous
  Country: GB (occurrence: GB)
  Receive Date: 20160324
  Receipt Date: 20160324
  Transmission Date: 20160526
  Serious: Yes (Disabling, Other)
  Sender: FDA-Public Use
  Company Number: GB-JNJFOC-20160320511

PATIENT
  Age: 32 Year
  Sex: Female
  Weight: 51 kg

DRUGS (1)
  1. XARELTO [Suspect]
     Active Substance: RIVAROXABAN
     Indication: FOOT FRACTURE
     Route: 048
     Dates: start: 20150630, end: 20150930

REACTIONS (11)
  - Headache [Recovering/Resolving]
  - Withdrawal syndrome [Unknown]
  - Decreased appetite [Recovered/Resolved]
  - Abnormal loss of weight [Not Recovered/Not Resolved]
  - Dizziness [Recovering/Resolving]
  - Loss of consciousness [Recovering/Resolving]
  - Visual acuity reduced [Not Recovered/Not Resolved]
  - Anaemia [Not Recovered/Not Resolved]
  - Menorrhagia [Recovered/Resolved with Sequelae]
  - Nausea [Recovered/Resolved]
  - Orthostatic hypotension [Recovering/Resolving]

NARRATIVE: CASE EVENT DATE: 20150703
